FAERS Safety Report 6570535-4 (Version None)
Quarter: 2010Q1

REPORT INFORMATION
  Report Type: 
  Country: None (occurrence: None)
  Receive Date: 20100204
  Receipt Date: 20100201
  Transmission Date: 20100710
  Serious: Yes (Life-Threatening)
  Sender: FDA-Public Use
  Company Number: IT-JNJFOC-20100107362

PATIENT
  Sex: Male

DRUGS (5)
  1. LEVOXACIN [Suspect]
     Indication: OROPHARYNGEAL GONOCOCCAL INFECTION
     Route: 048
  2. GLIBOMET [Suspect]
     Indication: DIABETES MELLITUS
     Route: 048
  3. JURNISTA [Concomitant]
     Route: 065
  4. NADROPARIN-CALCIUM [Concomitant]
     Route: 065
  5. LIPIDS [Concomitant]
     Route: 065

REACTIONS (2)
  - DEPRESSED LEVEL OF CONSCIOUSNESS [None]
  - HYPOGLYCAEMIA [None]
